FAERS Safety Report 5760187-5 (Version None)
Quarter: 2008Q2

REPORT INFORMATION
  Report Type: 
  Country: None (occurrence: None)
  Receive Date: 20080605
  Receipt Date: 20080529
  Transmission Date: 20081010
  Serious: No
  Sender: FDA-Public Use
  Company Number: US-BAXTER-2008BH005609

PATIENT
  Sex: Male
  Weight: 58 kg

DRUGS (7)
  1. HEPARIN SODIUM INJECTION [Suspect]
     Indication: PROPHYLAXIS
     Route: 065
     Dates: start: 20060101
  2. RENAL CAP [Concomitant]
     Dosage: DOSE UNIT:UNKNOWN
     Route: 065
  3. PHOSLO [Concomitant]
     Dosage: DOSE UNIT:UNKNOWN
     Route: 065
  4. CLONIDINE [Concomitant]
     Dosage: DOSE UNIT:UNKNOWN
     Route: 065
  5. MINOXIDIL [Concomitant]
     Dosage: DOSE UNIT:UNKNOWN
     Route: 065
  6. LABETALOL HCL [Concomitant]
     Dosage: DOSE UNIT:UNKNOWN
     Route: 065
  7. HIV MEDICATIONS [Concomitant]
     Dosage: DOSE UNIT:UNKNOWN
     Route: 065

REACTIONS (6)
  - ABDOMINAL PAIN UPPER [None]
  - DIARRHOEA [None]
  - GASTROINTESTINAL CANDIDIASIS [None]
  - HIATUS HERNIA [None]
  - NAUSEA [None]
  - VOMITING [None]
